FAERS Safety Report 15820252 (Version 2)
Quarter: 2019Q1

REPORT INFORMATION
  Report Type: Report from Study
  Country: GB (occurrence: GB)
  Receive Date: 20190114
  Receipt Date: 20190211
  Transmission Date: 20190417
  Serious: Yes (Hospitalization)
  Sender: FDA-Public Use
  Company Number: GB-ORION CORPORATION ORION PHARMA-19_00005193

PATIENT
  Age: 40 Year
  Sex: Male

DRUGS (6)
  1. DUODOPA [Suspect]
     Active Substance: CARBIDOPA\LEVODOPA
     Indication: PARKINSON^S DISEASE
     Dosage: 1 CASSETTE
     Route: 065
  2. DUODOPA [Suspect]
     Active Substance: CARBIDOPA\LEVODOPA
     Dosage: DOSE INCREASED TO 1.0ML
     Route: 065
  3. DUODOPA [Suspect]
     Active Substance: CARBIDOPA\LEVODOPA
     Dosage: DOSE INCREASED TO 1.2ML, 5MG/1ML, 20MG/1ML
     Route: 065
  4. STALEVO [Suspect]
     Active Substance: CARBIDOPA\ENTACAPONE\LEVODOPA
     Indication: PRODUCT USED FOR UNKNOWN INDICATION
     Route: 065
  5. SINEMET CR [Concomitant]
     Active Substance: CARBIDOPA\LEVODOPA
     Route: 065
     Dates: start: 2018
  6. DUODOPA [Suspect]
     Active Substance: CARBIDOPA\LEVODOPA
     Dosage: 5MG/1ML,20MG/1ML, MD^S AND RECOMMENCING OF PUMP WITH ADMINISTRATION OF MORNING BOLUS DOSE.
     Route: 065

REACTIONS (16)
  - Social problem [Unknown]
  - Freezing phenomenon [Unknown]
  - Weight decreased [Unknown]
  - Depression [Unknown]
  - Muscle rigidity [Unknown]
  - Depressed mood [Unknown]
  - Tremor [Unknown]
  - Dyskinesia [Unknown]
  - Urinary tract infection [Unknown]
  - Respiration abnormal [Not Recovered/Not Resolved]
  - Abnormal behaviour [Unknown]
  - Anxiety [Not Recovered/Not Resolved]
  - On and off phenomenon [Unknown]
  - Dystonia [Unknown]
  - Amnesia [Unknown]
  - Drug effect incomplete [Unknown]

NARRATIVE: CASE EVENT DATE: 2018
